FAERS Safety Report 8116771-7 (Version None)
Quarter: 2012Q1

REPORT INFORMATION
  Report Type: 
  Country: None (occurrence: None)
  Receive Date: 20120206
  Receipt Date: 20120130
  Transmission Date: 20120608
  Serious: Yes (Other)
  Sender: FDA-Public Use
  Company Number: PHHY2012SG008427

PATIENT
  Age: 53 Year
  Sex: Female

DRUGS (6)
  1. CARBAMAZEPINE [Suspect]
     Indication: TRIGEMINAL NEURALGIA
     Dosage: 200 MG, UNK
     Dates: start: 20060101, end: 20080401
  2. LAMOTRIGINE [Suspect]
     Indication: TRIGEMINAL NEURALGIA
  3. SIMVASTATIN [Concomitant]
  4. GABAPENTIN [Concomitant]
     Indication: TRIGEMINAL NEURALGIA
  5. IRBESARTAN [Concomitant]
  6. BACLOFEN [Concomitant]
     Indication: TRIGEMINAL NEURALGIA

REACTIONS (1)
  - HYPOGAMMAGLOBULINAEMIA [None]
